FAERS Safety Report 15580461 (Version 3)
Quarter: 2020Q1

REPORT INFORMATION
  Report Type: Report from Study
  Country: CA (occurrence: CA)
  Receive Date: 20181102
  Receipt Date: 20200123
  Transmission Date: 20200409
  Serious: Yes (Hospitalization)
  Sender: FDA-Public Use
  Company Number: CA-ACTELION-A-NJ2018-181101

PATIENT
  Sex: Female
  Weight: 84 kg

DRUGS (12)
  1. FUROSEMIDE. [Concomitant]
     Active Substance: FUROSEMIDE
  2. DALTEPARIN [Concomitant]
     Active Substance: DALTEPARIN
  3. IRON [Concomitant]
     Active Substance: IRON
  4. TOLOXIN [Concomitant]
     Active Substance: DIGOXIN
  5. OPSUMIT [Suspect]
     Active Substance: MACITENTAN
     Indication: PULMONARY ARTERIAL HYPERTENSION
     Dosage: 10 MG, QD
     Route: 048
     Dates: start: 20150422
  6. CALTRATE WITH VITAMIN D [Concomitant]
     Active Substance: CALCIUM CARBONATE\CHOLECALCIFEROL
  7. ADEMPAS [Concomitant]
     Active Substance: RIOCIGUAT
  8. METOCLOPRAMIDE. [Concomitant]
     Active Substance: METOCLOPRAMIDE
  9. RABEPRAZOLE [Concomitant]
     Active Substance: RABEPRAZOLE
  10. CARIPUL [Suspect]
     Active Substance: EPOPROSTENOL
     Indication: PULMONARY ARTERIAL HYPERTENSION
     Dosage: 45000 NG, UNK
     Route: 042
     Dates: start: 20141211
  11. ONDANSETRON [Concomitant]
     Active Substance: ONDANSETRON
  12. ASPIRIN. [Concomitant]
     Active Substance: ASPIRIN

REACTIONS (7)
  - Asthenia [Unknown]
  - Splenomegaly [Unknown]
  - Hospitalisation [Unknown]
  - Transfusion [Unknown]
  - Fatigue [Unknown]
  - Anaemia [Unknown]
  - Haemoglobin decreased [Unknown]
